FAERS Safety Report 9759757 (Version 2)
Quarter: 2015Q3

REPORT INFORMATION
  Report Type: Spontaneous
  Country: US (occurrence: US)
  Receive Date: 20131216
  Receipt Date: 20150806
  Transmission Date: 20151125
  Serious: Yes (Hospitalization)
  Sender: FDA-Public Use
  Company Number: US-GILEAD-2010-0029115

PATIENT
  Age: 65 Year
  Sex: Male
  Weight: 81.8 kg

DRUGS (12)
  1. LETAIRIS [Suspect]
     Active Substance: AMBRISENTAN
     Indication: PULMONARY ARTERIAL HYPERTENSION
     Route: 048
     Dates: start: 20090422
  2. TYLENOL [Concomitant]
     Active Substance: ACETAMINOPHEN
  3. COUMADIN [Concomitant]
     Active Substance: WARFARIN SODIUM
  4. DILANTIN [Concomitant]
     Active Substance: PHENYTOIN
  5. ZOCOR [Concomitant]
     Active Substance: SIMVASTATIN
  6. CARDIZEM [Concomitant]
     Active Substance: DILTIAZEM HYDROCHLORIDE
  7. ALLOPURINOL. [Concomitant]
     Active Substance: ALLOPURINOL
  8. METOLAZONE. [Concomitant]
     Active Substance: METOLAZONE
  9. LEVOXYL [Concomitant]
     Active Substance: LEVOTHYROXINE SODIUM
  10. DEMADEX [Concomitant]
     Active Substance: TORSEMIDE
  11. SPIRONOLACTONE. [Concomitant]
     Active Substance: SPIRONOLACTONE
  12. K-DUR [Concomitant]
     Active Substance: POTASSIUM CHLORIDE

REACTIONS (1)
  - Fluid overload [Recovered/Resolved]

NARRATIVE: CASE EVENT DATE: 20100504
